FAERS Safety Report 18505332 (Version 1)
Quarter: 2020Q4

REPORT INFORMATION
  Report Type: Spontaneous
  Country: DE (occurrence: DE)
  Receive Date: 20201116
  Receipt Date: 20201116
  Transmission Date: 20210114
  Serious: Yes (Hospitalization, Other)
  Sender: FDA-Public Use
  Company Number: DE-TEVA-2020-DE-1848038

PATIENT
  Age: 82 Year
  Sex: Female

DRUGS (6)
  1. SIMVASTATIN. [Concomitant]
     Active Substance: SIMVASTATIN
     Dosage: 20 MILLIGRAM DAILY;  0-0-1-0
     Route: 048
  2. CLOPIDOGREL [Concomitant]
     Active Substance: CLOPIDOGREL BISULFATE
     Dosage: 75 MILLIGRAM DAILY; 1-0-0-0
     Route: 048
  3. TERABLOCK 5MG [Concomitant]
     Dosage: 5 MILLIGRAM DAILY;  0-0-1-0
     Route: 048
  4. ACETYLSALICYLSAURE [Concomitant]
     Active Substance: ASPIRIN
     Dosage: 100 MILLIGRAM DAILY;  1-0-0-0
     Route: 048
  5. BISOPROLOL [Concomitant]
     Active Substance: BISOPROLOL
     Dosage: 2.5 MILLIGRAM DAILY; 1-0-0-0
     Route: 048
  6. IBUPROFEN. [Suspect]
     Active Substance: IBUPROFEN
     Dosage: IF NECESSARY
     Route: 048

REACTIONS (5)
  - Abdominal pain [Unknown]
  - Abdominal pain upper [Unknown]
  - Angina pectoris [Unknown]
  - Acute coronary syndrome [Unknown]
  - Hypertension [Unknown]
